FAERS Safety Report 12596058 (Version 8)
Quarter: 2016Q4

REPORT INFORMATION
  Report Type: Report from Study
  Country: US (occurrence: US)
  Receive Date: 20160726
  Receipt Date: 20161118
  Transmission Date: 20170207
  Serious: Yes (Hospitalization, Other)
  Sender: FDA-Public Use
  Company Number: US-GILEAD-2016-0224262

PATIENT
  Age: 25 Year
  Sex: Female

DRUGS (6)
  1. VELETRI [Concomitant]
     Active Substance: EPOPROSTENOL
  2. COUMADIN [Concomitant]
     Active Substance: WARFARIN SODIUM
  3. UPTRAVI [Concomitant]
     Active Substance: SELEXIPAG
  4. AMBRISENTAN [Suspect]
     Active Substance: AMBRISENTAN
     Indication: PRODUCT USED FOR UNKNOWN INDICATION
     Dosage: 10 MG, QD
     Route: 065
     Dates: start: 20130304
  5. TYVASO [Concomitant]
     Active Substance: TREPROSTINIL
  6. ADCIRCA [Concomitant]
     Active Substance: TADALAFIL

REACTIONS (14)
  - Discomfort [Unknown]
  - Pulmonary arterial hypertension [Unknown]
  - Pain in jaw [Not Recovered/Not Resolved]
  - Headache [Not Recovered/Not Resolved]
  - Application site pruritus [Unknown]
  - Device alarm issue [Unknown]
  - Pain [Unknown]
  - Nausea [Unknown]
  - Application site erythema [Unknown]
  - Arthralgia [Unknown]
  - Chills [Unknown]
  - Diarrhoea [Unknown]
  - Body temperature increased [Unknown]
  - Flushing [Unknown]
